FAERS Safety Report 15776644 (Version 1)
Quarter: 2018Q4

REPORT INFORMATION
  Report Type: Spontaneous
  Country: US (occurrence: US)
  Receive Date: 20181231
  Receipt Date: 20181231
  Transmission Date: 20190205
  Serious: No
  Sender: FDA-Public Use
  Company Number: US-PFIZER INC-2017526858

PATIENT
  Age: 2 Month
  Sex: Male
  Weight: 3.88 kg

DRUGS (3)
  1. GENOTROPIN MQ [Suspect]
     Active Substance: SOMATROPIN
     Dosage: 0.2 MG, ALTERNATE DAY (GENOTROPIN 0.4MG AND 0.2MG MINIQUICK, ALTERNATING DOSES, 7 DAYS A WEEK)
  2. GENOTROPIN MQ [Suspect]
     Active Substance: SOMATROPIN
     Indication: CHARGE SYNDROME
     Dosage: 0.4 MG, ALTERNATE DAY (GENOTROPIN 0.4MG AND 0.2MG MINIQUICK, ALTERNATING DOSES, 7 DAYS A WEEK)
  3. GENOTROPIN MQ [Suspect]
     Active Substance: SOMATROPIN
     Indication: HORMONE THERAPY
     Dosage: 0.2 MG, DAILY
     Dates: start: 2016

REACTIONS (14)
  - Blood urea increased [Unknown]
  - Blood alkaline phosphatase increased [Unknown]
  - Blood chloride decreased [Unknown]
  - Anion gap increased [Unknown]
  - Carbon dioxide decreased [Unknown]
  - Insulin-like growth factor increased [Unknown]
  - Blood creatinine decreased [Unknown]
  - Blood phosphorus increased [Unknown]
  - Blood albumin decreased [Unknown]
  - Aspartate aminotransferase increased [Unknown]
  - Blood potassium increased [Unknown]
  - Blood glucose decreased [Unknown]
  - Protein total decreased [Unknown]
  - Blood glucose increased [Unknown]

NARRATIVE: CASE EVENT DATE: 20161021
